FAERS Safety Report 6612770-2 (Version None)
Quarter: 2010Q1

REPORT INFORMATION
  Report Type: 
  Country: None (occurrence: None)
  Receive Date: 20100303
  Receipt Date: 20100223
  Transmission Date: 20100710
  Serious: Yes (Other)
  Sender: FDA-Public Use
  Company Number: US-PFIZER INC-2010023991

PATIENT
  Sex: Female

DRUGS (1)
  1. REVATIO [Suspect]

REACTIONS (3)
  - CARDIAC PACEMAKER INSERTION [None]
  - PULMONARY HYPERTENSION [None]
  - RAYNAUD'S PHENOMENON [None]
